FAERS Safety Report 7034570-4 (Version None)
Quarter: 2010Q4

REPORT INFORMATION
  Report Type: 
  Country: None (occurrence: None)
  Receive Date: 20101008
  Receipt Date: 20101001
  Transmission Date: 20110411
  Serious: Yes (Life-Threatening)
  Sender: FDA-Public Use
  Company Number: JP-SHIRE-SPV1-2010-01714

PATIENT
  Age: 65 Year
  Sex: Female

DRUGS (1)
  1. FOSRENOL [Suspect]
     Dosage: 750MG DAILY
     Route: 048

REACTIONS (2)
  - ASPIRATION [None]
  - WRONG TECHNIQUE IN DRUG USAGE PROCESS [None]
